FAERS Safety Report 5651508-2 (Version None)
Quarter: 2008Q1

REPORT INFORMATION
  Report Type: 
  Country: None (occurrence: None)
  Receive Date: 20080131
  Receipt Date: 20071113
  Transmission Date: 20080703
  Serious: No
  Sender: FDA-Public Use
  Company Number: US200711003537

PATIENT
  Age: 66 Year
  Sex: Female
  Weight: 89.8 kg

DRUGS (3)
  1. BYETTA [Suspect]
     Indication: TYPE 2 DIABETES MELLITUS
     Dosage: 5 UG, 2/D, SUBCUTANEOUS, 10 UG, 2/D, SUBCUTANEOUS
     Route: 058
     Dates: start: 20050101
  2. GLYBURIDE W/METFORMIN HYDROCHLORIDE (GLIBENCLAMIDE, METFORMIN HYDROCHL [Concomitant]
  3. OMEGA 3 FISH OIL [Concomitant]

REACTIONS (6)
  - BACK PAIN [None]
  - BLOOD GLUCOSE INCREASED [None]
  - CATARACT [None]
  - INJECTION SITE EXTRAVASATION [None]
  - INJECTION SITE PAIN [None]
  - VISUAL ACUITY REDUCED [None]
